FAERS Safety Report 25984471 (Version 2)
Quarter: 2025Q4

REPORT INFORMATION
  Report Type: Report from Study
  Country: CA (occurrence: CA)
  Receive Date: 20251031
  Receipt Date: 20251103
  Transmission Date: 20260117
  Serious: Yes (Other)
  Sender: TEVA
  Company Number: CA-TEVA-VS-3366213

PATIENT
  Age: 26 Year
  Sex: Female

DRUGS (6)
  1. AJOVY [Suspect]
     Active Substance: FREMANEZUMAB-VFRM
     Indication: Migraine prophylaxis
     Route: 058
     Dates: start: 20250716, end: 2025
  2. DULOXETINE [Concomitant]
     Active Substance: DULOXETINE
     Indication: Product used for unknown indication
     Dosage: DISCONTINUED
  3. UBRELVY [Concomitant]
     Active Substance: UBROGEPANT
     Indication: Product used for unknown indication
     Dosage: ACTIVE
  4. TYLENOL [Concomitant]
     Active Substance: ACETAMINOPHEN
     Indication: Headache
  5. ADVIL [Concomitant]
     Active Substance: IBUPROFEN
     Indication: Headache
  6. AMITRIPTYLINE [Concomitant]
     Active Substance: AMITRIPTYLINE
     Indication: Product used for unknown indication
     Dosage: DISCONTINUED

REACTIONS (9)
  - Anaphylactic shock [Unknown]
  - Injection site discolouration [Unknown]
  - Injection site rash [Unknown]
  - Nausea [Recovered/Resolved]
  - Injection site scar [Unknown]
  - Injection site warmth [Unknown]
  - Pain in extremity [Unknown]
  - Injection site swelling [Unknown]
  - Musculoskeletal stiffness [Unknown]

NARRATIVE: CASE EVENT DATE: 20250101
